FAERS Safety Report 24366734 (Version 1)
Quarter: 2024Q3

REPORT INFORMATION
  Report Type: Spontaneous
  Country: US (occurrence: None)
  Receive Date: 20240925
  Receipt Date: 20240925
  Transmission Date: 20241016
  Serious: Yes (Other)
  Sender: Public
  Company Number: None

PATIENT
  Sex: Female

DRUGS (22)
  1. XOLAIR [Suspect]
     Active Substance: OMALIZUMAB
     Indication: Asthma
  2. XOLAIR [Suspect]
     Active Substance: OMALIZUMAB
     Indication: Anaphylactic reaction
  3. XOLAIR [Suspect]
     Active Substance: OMALIZUMAB
     Indication: Food allergy
  4. SPIRIVA RESPIMAT [Concomitant]
     Active Substance: TIOTROPIUM BROMIDE
  5. ZYRTEC [Concomitant]
     Active Substance: CETIRIZINE HYDROCHLORIDE
  6. XYZAL [Concomitant]
     Active Substance: LEVOCETIRIZINE DIHYDROCHLORIDE
  7. HYDROXYZINE [Concomitant]
     Active Substance: HYDROXYZINE HYDROCHLORIDE
  8. LEVALBUTEROL [Concomitant]
     Active Substance: LEVALBUTEROL
  9. OLOPATADINE [Concomitant]
     Active Substance: OLOPATADINE
  10. XHANCE [Concomitant]
     Active Substance: FLUTICASONE PROPIONATE
  11. HERBALS\SPIRULINA [Concomitant]
     Active Substance: HERBALS\SPIRULINA
  12. OREGANO [Concomitant]
     Active Substance: OREGANO
  13. GINGER [Concomitant]
     Active Substance: GINGER
  14. HERBALS\TURMERIC [Concomitant]
     Active Substance: HERBALS\TURMERIC
  15. B2 [Concomitant]
  16. COENZYME Q10 [Concomitant]
     Active Substance: DIETARY SUPPLEMENT\UBIDECARENONE
  17. NAC [Concomitant]
  18. ALPHA LIPOIC ACID [Concomitant]
     Active Substance: .ALPHA.-LIPOIC ACID
  19. QUERCETIN [Concomitant]
     Active Substance: QUERCETIN
  20. womens probiotic [Concomitant]
  21. MAGNESIUM GLYCINATE [Concomitant]
     Active Substance: MAGNESIUM GLYCINATE
  22. DIETARY SUPPLEMENT\HERBALS\MILK THISTLE [Concomitant]
     Active Substance: MILK THISTLE

REACTIONS (6)
  - Hypoglycaemia [None]
  - Vision blurred [None]
  - Dizziness [None]
  - Angioedema [None]
  - Nasal congestion [None]
  - Dyspnoea [None]
